FAERS Safety Report 8462056-9 (Version None)
Quarter: 2012Q2

REPORT INFORMATION
  Report Type: 
  Country: None (occurrence: None)
  Receive Date: 20120625
  Receipt Date: 20120625
  Transmission Date: 20120825
  Serious: Yes (Hospitalization, Other)
  Sender: FDA-Public Use
  Company Number: US-PFIZER INC-2011US-46827

PATIENT
  Age: 35 Year
  Sex: Female

DRUGS (6)
  1. VERAPAMIL HCL [Suspect]
     Dosage: 240 MG, UNK
     Route: 065
  2. VERAPAMIL HCL [Suspect]
     Dosage: DOSE WAS HALVED
     Route: 065
  3. BENDROFLUMETHIAZIDE [Concomitant]
  4. CAPTOPRIL [Concomitant]
  5. VERAPAMIL HCL [Suspect]
     Indication: HYPERTENSION
     Dosage: UNK
     Route: 065
  6. NIFEDIPINE [Concomitant]

REACTIONS (1)
  - ACUTE MYOCARDIAL INFARCTION [None]
